FAERS Safety Report 8619546 (Version 6)
Quarter: 2012Q4

REPORT INFORMATION
  Report Type: 
  Country: DE (occurrence: DE)
  Receive Date: 20120618
  Receipt Date: 20121219
  Transmission Date: 20130627
  Serious: Yes (Other)
  Sender: FDA-Public Use
  Company Number: PHHY2012DE050985

PATIENT
  Sex: Male

DRUGS (9)
  1. LEPONEX [Suspect]
     Indication: PSYCHOTIC DISORDER
     Dates: start: 2003
  2. LEPONEX [Suspect]
     Dosage: 125 mg, daily
  3. LEPONEX [Suspect]
     Dosage: 175 mg, QD (per day)
     Route: 048
     Dates: end: 201210
  4. LEPONEX [Suspect]
     Dosage: 125 mg, daily
     Route: 048
  5. LEPONEX [Suspect]
     Dosage: 150 mg, QD
     Route: 048
     Dates: start: 201210
  6. LEPONEX [Suspect]
     Dosage: 125 mg, QD
     Route: 048
  7. DIAZEPAM [Concomitant]
     Dosage: 5 mg, TID
  8. INVEGA (PALIPERIDONE) [Concomitant]
     Indication: SCHIZOPHRENIA, PARANOID TYPE
     Dosage: 1 DF, QD
     Dates: start: 201105
  9. SEROQUEL [Concomitant]
     Dosage: UNK UKN, UNK

REACTIONS (6)
  - Metabolic syndrome [Not Recovered/Not Resolved]
  - Glucose tolerance impaired [Not Recovered/Not Resolved]
  - Polydipsia [Not Recovered/Not Resolved]
  - Cardiovascular insufficiency [Recovering/Resolving]
  - Somnolence [Recovering/Resolving]
  - Dyskinesia [Recovered/Resolved]
